FAERS Safety Report 6917583-X (Version None)
Quarter: 2010Q3

REPORT INFORMATION
  Report Type: 
  Country: None (occurrence: None)
  Receive Date: 20100810
  Receipt Date: 20100805
  Transmission Date: 20110219
  Serious: Yes (Hospitalization, Other)
  Sender: FDA-Public Use
  Company Number: US-BRISTOL-MYERS SQUIBB COMPANY-15226913

PATIENT
  Age: 21 Year
  Sex: Female

DRUGS (1)
  1. ORENCIA [Suspect]
     Dosage: 4 MONTHS AGO. 3RD INFUSION ON 30JUL2010

REACTIONS (4)
  - HEADACHE [None]
  - HYPERAESTHESIA [None]
  - OVARIAN CYST [None]
  - PAIN [None]
